FAERS Safety Report 18160998 (Version 8)
Quarter: 2020Q4

REPORT INFORMATION
  Report Type: Spontaneous
  Country: US (occurrence: US)
  Receive Date: 20200818
  Receipt Date: 20201008
  Transmission Date: 20210113
  Serious: No
  Sender: FDA-Public Use
  Company Number: US-UNITED THERAPEUTICS-UNT-2020-011866

PATIENT
  Age: 56 Year
  Sex: Female
  Weight: 105.22 kg

DRUGS (7)
  1. TADALAFIL. [Concomitant]
     Active Substance: TADALAFIL
     Indication: PRODUCT USED FOR UNKNOWN INDICATION
     Dosage: UNK
     Route: 065
  2. REMODULIN [Suspect]
     Active Substance: TREPROSTINIL
     Dosage: 0.072 ?G/KG, CONTINUING
     Route: 058
  3. AMBRISENTAN [Concomitant]
     Active Substance: AMBRISENTAN
     Indication: PRODUCT USED FOR UNKNOWN INDICATION
     Dosage: UNK
     Route: 065
  4. REMODULIN [Suspect]
     Active Substance: TREPROSTINIL
     Dosage: 0.067 ?G/KG, CONTINUING
     Route: 058
  5. REMODULIN [Suspect]
     Active Substance: TREPROSTINIL
     Dosage: 0.061 ?G/KG, CONTINUING
     Route: 058
  6. REMODULIN [Suspect]
     Active Substance: TREPROSTINIL
     Indication: PULMONARY ARTERIAL HYPERTENSION
     Dosage: UNK, CONTINUING
     Route: 058
     Dates: start: 20170817
  7. REMODULIN [Suspect]
     Active Substance: TREPROSTINIL
     Dosage: 0.064 ?G/KG, CONTINUING
     Route: 058

REACTIONS (25)
  - Pain in extremity [Unknown]
  - Intentional product use issue [Unknown]
  - Flushing [Unknown]
  - Anxiety [Unknown]
  - Dizziness [Unknown]
  - Pain [Unknown]
  - Back pain [Unknown]
  - Dysgeusia [Unknown]
  - Breath odour [Unknown]
  - Discomfort [Unknown]
  - Hot flush [Unknown]
  - Intentional removal of drug delivery system by patient [Unknown]
  - Myalgia [Unknown]
  - Haematuria [Recovered/Resolved]
  - Muscle spasms [Recovering/Resolving]
  - Hypoaesthesia [Unknown]
  - Feeling abnormal [Unknown]
  - Heart rate irregular [Unknown]
  - Gait disturbance [Unknown]
  - Malaise [Unknown]
  - Irritability [Unknown]
  - Headache [Unknown]
  - Chest pain [Unknown]
  - Nervousness [Unknown]
  - Muscle strain [Unknown]

NARRATIVE: CASE EVENT DATE: 20200812
